FAERS Safety Report 17527526 (Version 1)
Quarter: 2020Q1

REPORT INFORMATION
  Report Type: Spontaneous
  Country: US (occurrence: US)
  Receive Date: 20200311
  Receipt Date: 20200311
  Transmission Date: 20200409
  Serious: No
  Sender: FDA-Public Use
  Company Number: US-JNJFOC-20200312054

PATIENT
  Sex: Male

DRUGS (2)
  1. ZYTIGA [Suspect]
     Active Substance: ABIRATERONE ACETATE
     Indication: PRODUCT USED FOR UNKNOWN INDICATION
     Dosage: SUNDAY, TUESDAY, THURSDAY, SATURDAY
     Route: 048
  2. ZYTIGA [Suspect]
     Active Substance: ABIRATERONE ACETATE
     Dosage: MONDAY, WEDNESDAY, FRIDAY.
     Route: 048

REACTIONS (4)
  - Urinary tract infection [Unknown]
  - Product use issue [Unknown]
  - Off label use [Unknown]
  - Prostatic disorder [Unknown]
